FAERS Safety Report 23913234 (Version 4)
Quarter: 2024Q3

REPORT INFORMATION
  Report Type: Report from Study
  Country: BR (occurrence: BR)
  Receive Date: 20240529
  Receipt Date: 20240823
  Transmission Date: 20241017
  Serious: Yes (Hospitalization)
  Sender: NOVARTIS
  Company Number: BR-002147023-NVSC2024BR112465

PATIENT
  Age: 48 Year
  Sex: Male

DRUGS (2)
  1. COSENTYX [Suspect]
     Active Substance: SECUKINUMAB
     Indication: Product used for unknown indication
     Dosage: UNK
     Route: 065
     Dates: start: 20240517
  2. COSENTYX [Suspect]
     Active Substance: SECUKINUMAB
     Dosage: UNK (HE APPLIED AGAIN 2 WEEKS AGO)
     Route: 065

REACTIONS (5)
  - Infection [Unknown]
  - Neoplasm [Unknown]
  - Cellulitis [Unknown]
  - Decreased immune responsiveness [Unknown]
  - Pain [Unknown]

NARRATIVE: CASE EVENT DATE: 20240522
